FAERS Safety Report 4435408-1 (Version None)
Quarter: 2004Q3

REPORT INFORMATION
  Report Type: 
  Country: None (occurrence: None)
  Receive Date: 20040826
  Receipt Date: 20040811
  Transmission Date: 20050211
  Serious: Yes (Hospitalization)
  Sender: FDA-Public Use
  Company Number: 04P-163-0270139-00

PATIENT
  Age: 60 Year
  Sex: Female
  Weight: 48.0813 kg

DRUGS (8)
  1. BIAXIN [Suspect]
     Indication: LUNG INFECTION
     Dosage: 500 MG, 2 IN 1 D, PER ORAL
     Route: 048
     Dates: start: 20040726, end: 20040801
  2. SALMETEROL XINAFOATE [Concomitant]
  3. FLUTICASONE PROPIONATE [Concomitant]
  4. THEOPHYLLINE [Concomitant]
  5. ALDACTAZIDE-A [Concomitant]
  6. PROVELLA-14 [Concomitant]
  7. ATORVASTATIN [Concomitant]
  8. ALENDRONATE SODIUM [Concomitant]

REACTIONS (3)
  - DEHYDRATION [None]
  - DIARRHOEA [None]
  - VOMITING [None]
